FAERS Safety Report 6018475-3 (Version None)
Quarter: 2008Q4

REPORT INFORMATION
  Report Type: 
  Country: None (occurrence: None)
  Receive Date: 20081219
  Receipt Date: 20071130
  Transmission Date: 20090506
  Serious: Yes (Hospitalization)
  Sender: FDA-Public Use
  Company Number: US200712000336

PATIENT
  Sex: Male

DRUGS (2)
  1. HUMULIN R [Suspect]
     Dates: start: 19930101
  2. HUMULIN N [Suspect]
     Dates: start: 19930101

REACTIONS (1)
  - BLOOD GLUCOSE INCREASED [None]
